FAERS Safety Report 7893196-0 (Version None)
Quarter: 2011Q4

REPORT INFORMATION
  Report Type: 
  Country: None (occurrence: None)
  Receive Date: 20111104
  Receipt Date: 20111025
  Transmission Date: 20120403
  Serious: Yes (Other)
  Sender: FDA-Public Use
  Company Number: PHFR2011GB06129

PATIENT
  Age: 70 Year
  Sex: Female

DRUGS (8)
  1. VOLTAREN [Suspect]
     Route: 054
     Dates: start: 20111012
  2. DIHYDROCODEINE BITARTRATE INJ [Concomitant]
  3. HYDROXYCHLOROQUINE SULFATE [Concomitant]
  4. RANITIDINE [Concomitant]
  5. ALENDRONIC ACID [Concomitant]
  6. PREDNISOLONE [Concomitant]
  7. BUPRENORPHINE [Concomitant]
  8. ADCAL [Concomitant]

REACTIONS (4)
  - HALLUCINATION [None]
  - MOOD ALTERED [None]
  - CONFUSIONAL STATE [None]
  - ANXIETY [None]
